FAERS Safety Report 10151594 (Version 4)
Quarter: 2014Q2

REPORT INFORMATION
  Report Type: Report from Study
  Country: CA (occurrence: CA)
  Receive Date: 20140505
  Receipt Date: 20140606
  Transmission Date: 20141212
  Serious: Yes (Death, Hospitalization)
  Sender: FDA-Public Use
  Company Number: CA-ROCHE-1359564

PATIENT
  Age: 26 Year
  Sex: Male
  Weight: 51.7 kg

DRUGS (7)
  1. RITUXAN [Suspect]
     Indication: SCLERODERMA
     Route: 042
     Dates: start: 201103, end: 201105
  2. RITUXAN [Suspect]
     Indication: GRAFT VERSUS HOST DISEASE
     Route: 042
     Dates: start: 201311, end: 201312
  3. RITUXAN [Suspect]
     Dosage: FOR 4 WEEK
     Route: 042
     Dates: start: 20140331, end: 20140414
  4. SIROLIMUS [Concomitant]
     Indication: GRAFT VERSUS HOST DISEASE
     Dosage: LOWER THAN 2MG NOS
     Route: 048
  5. MYCOPHENOLATE MOFETIL [Concomitant]
  6. PREDNISONE [Concomitant]
     Indication: GRAFT VERSUS HOST DISEASE
     Dosage: LESS THAN 50MG NOS
     Route: 048
     Dates: start: 20140303
  7. CELLCEPT [Concomitant]
     Indication: GRAFT VERSUS HOST DISEASE
     Route: 048

REACTIONS (7)
  - Respiratory failure [Fatal]
  - Skin ulcer [Unknown]
  - Gastrointestinal bacterial infection [Recovered/Resolved]
  - Off label use [Unknown]
  - Pain [Unknown]
  - Body temperature increased [Unknown]
  - Heart rate increased [Unknown]
